FAERS Safety Report 4609114-4 (Version None)
Quarter: 2005Q2

REPORT INFORMATION
  Report Type: 
  Country: None (occurrence: None)
  Receive Date: 20050301
  Receipt Date: 20041229
  Transmission Date: 20051028
  Serious: Yes (Hospitalization)
  Sender: FDA-Public Use
  Company Number: 1718

PATIENT
  Age: 84 Year
  Sex: Female

DRUGS (1)
  1. AVINZA [Suspect]
     Dosage: 60 MG QD; PO
     Route: 048
     Dates: start: 20040501, end: 20040501

REACTIONS (3)
  - COMA [None]
  - DEPRESSION [None]
  - VOMITING [None]
